FAERS Safety Report 18492381 (Version 1)
Quarter: 2020Q4

REPORT INFORMATION
  Report Type: Spontaneous
  Country: JP (occurrence: JP)
  Receive Date: 20201111
  Receipt Date: 20201111
  Transmission Date: 20210114
  Serious: Yes (Hospitalization, Other)
  Sender: FDA-Public Use
  Company Number: JP-009507513-2011JPN000422J

PATIENT
  Age: 8 Decade
  Sex: Female

DRUGS (28)
  1. TS-1 [Concomitant]
     Active Substance: GIMERACIL\OTERACIL\TEGAFUR
     Indication: NON-SMALL CELL LUNG CANCER
     Dosage: 100 MILLIGRAM/TIME
     Route: 065
     Dates: start: 20200603, end: 20200625
  2. BROTIZOLAM OD [Concomitant]
     Active Substance: BROTIZOLAM
     Dosage: UNK
     Route: 048
  3. CINAL [Concomitant]
     Dosage: UNK
     Route: 048
  4. XYLOCAINE [Concomitant]
     Active Substance: LIDOCAINE HYDROCHLORIDE
     Dosage: UNK
     Route: 065
  5. TS-1 [Concomitant]
     Active Substance: GIMERACIL\OTERACIL\TEGAFUR
     Dosage: 80 MILLIGRAM/TIME
     Route: 065
     Dates: start: 20200730, end: 20200820
  6. THYRADIN S [Concomitant]
     Active Substance: LEVOTHYROXINE SODIUM
     Dosage: UNK
     Route: 048
  7. NEXIUM [Concomitant]
     Active Substance: ESOMEPRAZOLE MAGNESIUM
     Dosage: UNK
     Route: 048
  8. JUVELA N [Concomitant]
     Active Substance: TOCOPHERYL NICOTINATE, D-.ALPHA.
     Dosage: UNK
     Route: 048
  9. CARBOPLATIN. [Suspect]
     Active Substance: CARBOPLATIN
     Dosage: 210 MILLIGRAM/TIME
     Route: 065
     Dates: start: 20200730, end: 2020
  10. ALINAMIN F [Concomitant]
     Active Substance: FURSULTIAMINE HYDROCHLORIDE
     Dosage: UNK
     Route: 048
  11. GLYCERIN. [Concomitant]
     Active Substance: GLYCERIN
     Dosage: UNK
     Route: 065
  12. DISTILLED WATER [Concomitant]
     Dosage: UNK
     Route: 065
  13. KEYTRUDA [Suspect]
     Active Substance: PEMBROLIZUMAB
     Dosage: 200MG/BODY
     Route: 041
     Dates: start: 20190912, end: 20200514
  14. TRAMAL [Concomitant]
     Active Substance: TRAMADOL
     Indication: NON-SMALL CELL LUNG CANCER
     Dosage: UNK
     Route: 048
  15. TSUMURA TOKISHAKUYAKUSAN EXTRACT GRANULES FOR ETHICAL USE [Concomitant]
     Dosage: UNK
     Route: 048
  16. PROPETO [Concomitant]
     Active Substance: PETROLATUM
     Dosage: UNK
     Route: 065
  17. HEMOPORISON [Concomitant]
     Dosage: UNK
     Route: 051
  18. CARBOPLATIN. [Suspect]
     Active Substance: CARBOPLATIN
     Indication: NON-SMALL CELL LUNG CANCER
     Dosage: 290 MILLIGRAM/TIME
     Route: 065
     Dates: start: 20200603, end: 20200625
  19. CELECOXIB. [Concomitant]
     Active Substance: CELECOXIB
     Dosage: UNK
     Route: 048
  20. AZUNOL [Concomitant]
     Dosage: UNK
     Route: 051
  21. MAGMITT [Concomitant]
     Active Substance: MAGNESIUM OXIDE
     Dosage: UNK
     Route: 048
  22. BILANOA [Concomitant]
     Active Substance: BILASTINE
     Dosage: UNK
     Route: 048
  23. LOXOPROFEN NA [Concomitant]
     Active Substance: LOXOPROFEN SODIUM
     Dosage: UNK
     Route: 051
  24. MOSAPRIDE CITRATE HYDRATE [Concomitant]
     Active Substance: MOSAPRIDE CITRATE DIHYDRATE
     Dosage: UNK
     Route: 048
  25. SENNOSIDE [Concomitant]
     Active Substance: SENNOSIDES
     Dosage: UNK
     Route: 048
  26. CHOCOLA A [Concomitant]
     Dosage: UNK
     Route: 048
  27. TOWAZUREN [Concomitant]
     Dosage: UNK
     Route: 048
  28. AZULENE G [Concomitant]
     Active Substance: SODIUM GUALENATE MONOHYDRATE
     Dosage: UNK
     Route: 048

REACTIONS (3)
  - Myelosuppression [Recovering/Resolving]
  - Febrile neutropenia [Unknown]
  - Malignant neoplasm progression [Unknown]

NARRATIVE: CASE EVENT DATE: 202004
